FAERS Safety Report 9127396 (Version 1)
Quarter: 2013Q1

REPORT INFORMATION
  Report Type: Report from Study
  Country: US (occurrence: US)
  Receive Date: 20130125
  Receipt Date: 20130125
  Transmission Date: 20140127
  Serious: Yes (Death)
  Sender: FDA-Public Use
  Company Number: US-MYLANLABS-2013S1001217

PATIENT
  Age: 18 Year
  Sex: Male

DRUGS (3)
  1. AMNESTEEM CAPSULES [Suspect]
     Indication: ACNE
     Dates: start: 20121218
  2. CLARAVIS [Suspect]
     Indication: ACNE
  3. TYLENOL [Concomitant]

REACTIONS (1)
  - Road traffic accident [Fatal]
